FAERS Safety Report 5600000-X (Version None)
Quarter: 2007Q4

REPORT INFORMATION
  Report Type: 
  Country: None (occurrence: None)
  Receive Date: 20071226
  Receipt Date: 20071003
  Transmission Date: 20080405
  Serious: Yes (Other)
  Sender: FDA-Public Use
  Company Number: 244668

PATIENT
  Age: 50 Year
  Sex: Female

DRUGS (6)
  1. RAPTIVA [Suspect]
     Indication: PSORIASIS
     Dates: start: 20070501
  2. TOPICAL MEDICATIONS (GENERIC COMPONENT (S) NOT KNOWN) [Concomitant]
  3. VYTORIN [Concomitant]
  4. ALLEGRA [Concomitant]
  5. FLUTICASONE PROPIONATE [Concomitant]
  6. ASPIRIN [Concomitant]

REACTIONS (1)
  - PSORIASIS [None]
